FAERS Safety Report 12236384 (Version 2)
Quarter: 2016Q2

REPORT INFORMATION
  Report Type: Spontaneous
  Country: GR (occurrence: GR)
  Receive Date: 20160404
  Receipt Date: 20160531
  Transmission Date: 20160815
  Serious: Yes (Hospitalization, Other)
  Sender: FDA-Public Use
  Company Number: GR-009507513-1603GRC013628

PATIENT
  Age: 47 Year
  Sex: Male

DRUGS (1)
  1. PREGNYL [Suspect]
     Active Substance: CHORIOGONADOTROPIN ALFA
     Indication: STEROID THERAPY
     Dosage: 1500 IU/AMP EVERY 3 DAYS
     Route: 030

REACTIONS (4)
  - Off label use [Unknown]
  - Hypertensive crisis [Unknown]
  - Cardiac failure [Unknown]
  - Depression [Unknown]

NARRATIVE: CASE EVENT DATE: 20160323
